FAERS Safety Report 8820939 (Version 2)
Quarter: 2015Q2

REPORT INFORMATION
  Report Type: Report from Study
  Country: US (occurrence: US)
  Receive Date: 20121002
  Receipt Date: 20150422
  Transmission Date: 20150821
  Serious: Yes (Death)
  Sender: FDA-Public Use
  Company Number: US-ROCHE-1131514

PATIENT
  Sex: Female

DRUGS (5)
  1. RITUXAN [Suspect]
     Active Substance: RITUXIMAB
     Indication: LUNG DISORDER
     Dosage: 1ST,7TH,14TH,21ST DAY
     Route: 042
     Dates: end: 20111105
  2. RITUXAN [Suspect]
     Active Substance: RITUXIMAB
     Indication: POLYARTERITIS NODOSA
  3. RITUXAN [Suspect]
     Active Substance: RITUXIMAB
     Indication: OFF LABEL USE
  4. RITUXAN [Suspect]
     Active Substance: RITUXIMAB
     Indication: POLYARTERITIS NODOSA
     Route: 042
     Dates: start: 20111015
  5. RITUXAN [Suspect]
     Active Substance: RITUXIMAB
     Indication: BRONCHOLITHIASIS

REACTIONS (2)
  - Lung disorder [Fatal]
  - Pulmonary fibrosis [Fatal]
